FAERS Safety Report 5777859-9 (Version None)
Quarter: 2008Q2

REPORT INFORMATION
  Report Type: 
  Country: None (occurrence: None)
  Receive Date: 20080618
  Receipt Date: 20080610
  Transmission Date: 20081010
  Serious: Yes (Hospitalization, Other)
  Sender: FDA-Public Use
  Company Number: JP-ABBOTT-08P-087-0456373-00

PATIENT
  Age: 11 Year
  Sex: Male
  Weight: 31 kg

DRUGS (12)
  1. CLARITH DRY SYRUP [Suspect]
     Indication: PYREXIA
     Route: 048
     Dates: start: 20080123, end: 20080126
  2. LICORIS [Suspect]
     Indication: PYREXIA
     Dosage: 4 MILLILITERS
     Route: 048
     Dates: start: 20080118, end: 20080118
  3. DICKININ [Suspect]
     Indication: PYREXIA
     Route: 048
     Dates: start: 20080118, end: 20080118
  4. TRANEXAMIC ACID [Suspect]
     Indication: PHARYNGOLARYNGEAL PAIN
     Route: 048
     Dates: start: 20080126, end: 20080128
  5. CEFCAPENE PIVOXIL HYDROCHLORIDE HYDRATE [Suspect]
     Indication: PYREXIA
     Route: 048
     Dates: start: 20080126, end: 20080128
  6. ANTIBIOTICS-RESISTANT LACTIC ACID BACTERIAE [Concomitant]
     Indication: PROPHYLAXIS
     Route: 048
     Dates: start: 20080126, end: 20080128
  7. CEFOTAXIME SODIUM [Concomitant]
     Indication: PYREXIA
     Route: 042
     Dates: start: 20080128, end: 20080206
  8. UNSPECIFIED FLUID INFUSION [Concomitant]
     Indication: PYREXIA
     Route: 042
     Dates: start: 20080128
  9. HIGH CALORIE FLUID INFUSION [Concomitant]
     Indication: ORAL INTAKE REDUCED
     Route: 042
     Dates: start: 20080130
  10. WARFARIN SODIUM [Concomitant]
     Indication: THROMBOSIS
     Route: 048
     Dates: start: 20080215
  11. HEPARIN SODIUM [Concomitant]
     Indication: THROMBOSIS
     Route: 042
     Dates: start: 20080205, end: 20080219
  12. MEROPENEM HYDRATE [Concomitant]
     Indication: DRUG USE FOR UNKNOWN INDICATION
     Dates: start: 20080206

REACTIONS (16)
  - BACK PAIN [None]
  - BLOOD URINE PRESENT [None]
  - C-REACTIVE PROTEIN INCREASED [None]
  - CATHETER SITE PAIN [None]
  - CONJUNCTIVAL HYPERAEMIA [None]
  - DEEP VEIN THROMBOSIS [None]
  - DIARRHOEA [None]
  - FACE OEDEMA [None]
  - KIDNEY ENLARGEMENT [None]
  - OEDEMA PERIPHERAL [None]
  - ORAL INTAKE REDUCED [None]
  - PYREXIA [None]
  - RENAL FAILURE ACUTE [None]
  - SKIN EXFOLIATION [None]
  - STRAWBERRY TONGUE [None]
  - WHITE BLOOD CELL COUNT INCREASED [None]
